FAERS Safety Report 23708441 (Version 6)
Quarter: 2024Q3

REPORT INFORMATION
  Report Type: Report from Study
  Country: US (occurrence: US)
  Receive Date: 20240404
  Receipt Date: 20240723
  Transmission Date: 20241016
  Serious: Yes (Other)
  Sender: JOHNSON AND JOHNSON
  Company Number: US-JNJFOC-20240380966

PATIENT
  Age: 63 Year
  Sex: Female

DRUGS (3)
  1. DARZALEX [Suspect]
     Active Substance: DARATUMUMAB
     Indication: Plasma cell myeloma
     Route: 065
     Dates: start: 20240319
  2. REVLIMID [Concomitant]
     Active Substance: LENALIDOMIDE
     Indication: Product used for unknown indication
  3. DEXAMETHASONE [Concomitant]
     Active Substance: DEXAMETHASONE
     Indication: Product used for unknown indication

REACTIONS (8)
  - Paranasal sinus discomfort [Recovered/Resolved]
  - Throat irritation [Recovered/Resolved]
  - Nasal pruritus [Recovered/Resolved]
  - Infusion related reaction [Recovered/Resolved]
  - Blood potassium decreased [Recovered/Resolved]
  - Full blood count abnormal [Recovered/Resolved]
  - Device issue [Unknown]
  - Weight decreased [Recovering/Resolving]
